FAERS Safety Report 11671198 (Version 2)
Quarter: 2016Q3

REPORT INFORMATION
  Report Type: Spontaneous
  Country: US (occurrence: US)
  Receive Date: 20151028
  Receipt Date: 20160817
  Transmission Date: 20161109
  Serious: No
  Sender: FDA-Public Use
  Company Number: US-ASTRAZENECA-2015SF01442

PATIENT
  Sex: Male
  Weight: 81.6 kg

DRUGS (14)
  1. K-CITRATE [Concomitant]
  2. OXYCONTIN [Concomitant]
     Active Substance: OXYCODONE HYDROCHLORIDE
  3. ALPRAZALOM [Concomitant]
  4. REMACAIDE [Concomitant]
     Dosage: EVERY 2 MONTHS
  5. DULCOLAX NOS [Concomitant]
     Active Substance: BISACODYL OR DOCUSATE SODIUM
     Indication: LAXATIVE SUPPORTIVE CARE
  6. COLACE [Concomitant]
     Active Substance: DOCUSATE SODIUM
     Indication: LAXATIVE SUPPORTIVE CARE
  7. MOVANTIK [Suspect]
     Active Substance: NALOXEGOL OXALATE
     Indication: CONSTIPATION
     Route: 048
     Dates: start: 20151009
  8. AMLODIPINE [Concomitant]
     Active Substance: AMLODIPINE BESYLATE
  9. RELESTOR [Concomitant]
     Indication: CONSTIPATION
     Route: 042
  10. CITROBENZOPRINE [Concomitant]
  11. SIMVASTATIN. [Concomitant]
     Active Substance: SIMVASTATIN
  12. ATENOLOL. [Suspect]
     Active Substance: ATENOLOL
     Route: 065
  13. METACAPURINE [Concomitant]
  14. MOM [Concomitant]
     Active Substance: MAGNESIUM HYDROXIDE
     Indication: LAXATIVE SUPPORTIVE CARE

REACTIONS (7)
  - Constipation [Unknown]
  - Abdominal pain upper [Unknown]
  - Back pain [Unknown]
  - Neck pain [Unknown]
  - Pain [Unknown]
  - Myalgia [Unknown]
  - Nephrolithiasis [Unknown]
